FAERS Safety Report 5944311-7 (Version None)
Quarter: 2008Q4

REPORT INFORMATION
  Report Type: 
  Country: None (occurrence: None)
  Receive Date: 20081105
  Receipt Date: 20081021
  Transmission Date: 20090506
  Serious: Yes (Hospitalization)
  Sender: FDA-Public Use
  Company Number: 2008S1010702

PATIENT
  Age: 59 Year
  Sex: Female
  Weight: 64 kg

DRUGS (11)
  1. HUMIRA [Suspect]
     Indication: RHEUMATOID ARTHRITIS
     Dosage: SUBCUTANEOUS
     Route: 058
     Dates: start: 20080331
  2. METHOTREXATE [Suspect]
     Indication: RHEUMATOID ARTHRITIS
     Dosage: 20 MG; WEEKLY; ORAL
     Route: 048
     Dates: start: 20080331
  3. RIFAMPICIN [Concomitant]
  4. FOLIC ACID [Concomitant]
  5. B-KOMPLEX [Concomitant]
  6. FLUTICASONE PROPIONATE [Concomitant]
  7. ALBUTEROL [Concomitant]
  8. SALMETEROL XINAFOATE [Concomitant]
  9. CENTRUM SILVER [Concomitant]
  10. CALCIUM [Concomitant]
  11. FLUTICASONE PROPIONATE [Concomitant]

REACTIONS (1)
  - CHOLECYSTITIS [None]
